FAERS Safety Report 12183015 (Version 1)
Quarter: 2016Q1

REPORT INFORMATION
  Report Type: Spontaneous
  Country: DE (occurrence: DE)
  Receive Date: 20160316
  Receipt Date: 20160316
  Transmission Date: 20160526
  Serious: Yes (Congenital Anomaly, Other)
  Sender: FDA-Public Use
  Company Number: DE-HETERO LABS LTD-1049139

PATIENT
  Age: 1 Decade
  Sex: Male

DRUGS (6)
  1. MAGNESIUM CHLORIDE. [Concomitant]
     Active Substance: MAGNESIUM CHLORIDE
     Route: 064
     Dates: start: 20140918, end: 20150615
  2. ESCITALOPRAM [Suspect]
     Active Substance: ESCITALOPRAM OXALATE
     Indication: PRODUCT USED FOR UNKNOWN INDICATION
     Route: 064
     Dates: start: 20140918, end: 20150615
  3. PROTHIPENDYL HYDROCHLORIDE [Suspect]
     Active Substance: PROTHIPENDYL HYDROCHLORIDE
     Route: 064
     Dates: start: 20140918, end: 20150615
  4. PREGABALIN. [Concomitant]
     Active Substance: PREGABALIN
     Route: 064
  5. FOLIC ACID. [Concomitant]
     Active Substance: FOLIC ACID
     Route: 064
  6. LORAZEPAM. [Concomitant]
     Active Substance: LORAZEPAM
     Route: 064
     Dates: start: 20140918, end: 20150615

REACTIONS (3)
  - Small for dates baby [Not Recovered/Not Resolved]
  - Foetal exposure during pregnancy [Unknown]
  - Hypospadias [Not Recovered/Not Resolved]
